FAERS Safety Report 16635080 (Version 1)
Quarter: 2019Q3

REPORT INFORMATION
  Report Type: Spontaneous
  Country: US (occurrence: US)
  Receive Date: 20190726
  Receipt Date: 20190726
  Transmission Date: 20191004
  Serious: Yes (Other)
  Sender: FDA-Public Use
  Company Number: US-RECORDATI RARE DISEASES INC.-US-R13005-19-00206

PATIENT
  Weight: 1.1 kg

DRUGS (1)
  1. IBUPROFEN. [Suspect]
     Active Substance: IBUPROFEN
     Indication: PATENT DUCTUS ARTERIOSUS
     Route: 065

REACTIONS (4)
  - Aqueductal stenosis [Recovered/Resolved]
  - Posthaemorrhagic hydrocephalus [Recovered/Resolved]
  - Choroidal haemorrhage [Recovered/Resolved]
  - Cerebral haemorrhage [Recovered/Resolved]
